FAERS Safety Report 23065682 (Version 2)
Quarter: 2023Q4

REPORT INFORMATION
  Report Type: Spontaneous
  Country: US (occurrence: US)
  Receive Date: 20231014
  Receipt Date: 20231030
  Transmission Date: 20240110
  Serious: No
  Sender: FDA-Public Use
  Company Number: US-JNJFOC-20231012855

PATIENT
  Age: 63 Year
  Sex: Female

DRUGS (1)
  1. SIMPONI ARIA [Suspect]
     Active Substance: GOLIMUMAB
     Indication: Product used for unknown indication
     Route: 041

REACTIONS (3)
  - Hypersensitivity [Unknown]
  - Stomatitis [Unknown]
  - Rash [Unknown]

NARRATIVE: CASE EVENT DATE: 20230803
